FAERS Safety Report 7232707-5 (Version None)
Quarter: 2011Q1

REPORT INFORMATION
  Report Type: 
  Country: None (occurrence: None)
  Receive Date: 20110110
  Receipt Date: 20110104
  Transmission Date: 20110831
  Serious: Yes (Hospitalization)
  Sender: FDA-Public Use
  Company Number: 2011SP000170

PATIENT
  Age: 89 Year
  Sex: Male

DRUGS (12)
  1. ORGARAN [Suspect]
     Indication: PRODUCT USED FOR UNKNOWN INDICATION
     Dates: start: 20101019, end: 20101107
  2. VANCOMYCIN [Concomitant]
  3. OROCAL D3 [Concomitant]
  4. TIENAM (PRIMAXIN /00820501/) [Suspect]
     Indication: ANTIBIOTIC THERAPY
     Dates: start: 20101019, end: 20101107
  5. ZYVOX [Suspect]
     Indication: ANTIBIOTIC THERAPY
     Dates: start: 20101022, end: 20101105
  6. FOSFOMYCIN (OTHER MFR) (FOSFOMYCIN) [Suspect]
     Indication: ANTIBIOTIC THERAPY
     Dates: start: 20101019, end: 20101107
  7. FUROSEMIDE [Concomitant]
  8. KARDEGIC [Concomitant]
  9. ACTONEL [Concomitant]
  10. HEMIGOXINE [Concomitant]
  11. AMIODARONE [Concomitant]
  12. DIFFU K [Concomitant]

REACTIONS (1)
  - THROMBOCYTOPENIA [None]
